FAERS Safety Report 19816930 (Version 1)
Quarter: 2021Q3

REPORT INFORMATION
  Report Type: Spontaneous
  Country: MX (occurrence: MX)
  Receive Date: 20210910
  Receipt Date: 20210910
  Transmission Date: 20211014
  Serious: Yes (Other)
  Sender: FDA-Public Use
  Company Number: MX-FRESENIUS KABI-FK202109673

PATIENT
  Sex: Male

DRUGS (5)
  1. LENALIDOMIDE [Concomitant]
     Active Substance: LENALIDOMIDE
     Indication: PRODUCT USED FOR UNKNOWN INDICATION
     Route: 048
     Dates: start: 202007
  2. DARATUMUMAB [Suspect]
     Active Substance: DARATUMUMAB
     Indication: POEMS SYNDROME
     Route: 042
     Dates: start: 202007
  3. DEXAMETHASONE. [Concomitant]
     Active Substance: DEXAMETHASONE
     Indication: PRODUCT USED FOR UNKNOWN INDICATION
     Route: 065
     Dates: start: 201910
  4. DEXAMETHASONE. [Concomitant]
     Active Substance: DEXAMETHASONE
     Route: 042
     Dates: start: 202007
  5. BORTEZOMIB (MANUFACTURER UNKNOWN) [Suspect]
     Active Substance: BORTEZOMIB
     Indication: POEMS SYNDROME
     Route: 065
     Dates: start: 201910

REACTIONS (3)
  - HIV infection [Unknown]
  - Hepatitis B [Unknown]
  - Secondary syphilis [Unknown]

NARRATIVE: CASE EVENT DATE: 202001
